FAERS Safety Report 22694031 (Version 4)
Quarter: 2023Q4

REPORT INFORMATION
  Report Type: Spontaneous
  Country: US (occurrence: US)
  Receive Date: 20230711
  Receipt Date: 20231016
  Transmission Date: 20240110
  Serious: Yes (Hospitalization)
  Sender: FDA-Public Use
  Company Number: US-Calliditas-2023CAL00841

PATIENT
  Age: 74 Year
  Sex: Female

DRUGS (6)
  1. TARPEYO [Suspect]
     Active Substance: BUDESONIDE
     Indication: IgA nephropathy
     Dosage: 16 MG (4 MG CAPSULES) ONCE DAILY
     Route: 048
     Dates: start: 20230621
  2. AMLODIPINE [Concomitant]
     Active Substance: AMLODIPINE BESYLATE
  3. ATENOLOL [Concomitant]
     Active Substance: ATENOLOL
  4. VITAMIN D NOS [Concomitant]
     Active Substance: VITAMIN D NOS
  5. OMEGA-3 FATTY ACIDS [Concomitant]
     Active Substance: OMEGA-3 FATTY ACIDS
  6. LOSARTAN [Concomitant]
     Active Substance: LOSARTAN
     Dates: end: 20230803

REACTIONS (12)
  - Swelling of eyelid [Recovering/Resolving]
  - Swelling face [Not Recovered/Not Resolved]
  - Headache [Recovered/Resolved]
  - Pharyngeal swelling [Recovering/Resolving]
  - Dysphonia [Recovering/Resolving]
  - Joint swelling [Recovering/Resolving]
  - Ocular hyperaemia [Recovering/Resolving]
  - Hypertension [Recovering/Resolving]
  - Intentional underdose [Unknown]
  - Hypertension [Recovering/Resolving]
  - Peripheral swelling [Recovering/Resolving]
  - Nasopharyngitis [Unknown]

NARRATIVE: CASE EVENT DATE: 20230621
